FAERS Safety Report 4935268-6 (Version None)
Quarter: 2006Q1

REPORT INFORMATION
  Report Type: 
  Country: None (occurrence: None)
  Receive Date: 20060302
  Receipt Date: 20060210
  Transmission Date: 20060701
  Serious: Yes (Hospitalization, Other)
  Sender: FDA-Public Use
  Company Number: US200602002391

PATIENT
  Sex: Female

DRUGS (3)
  1. HUMULIN NPH(HUMAN INSULIN (RDNA ORIGIN) NPH UNKNOWN FORMULA) UNKNOWN [Suspect]
     Indication: DIABETES MELLITUS
  2. HUMALOG MIX 75/25 [Suspect]
     Indication: DIABETES MELLITUS
     Dosage: SEE IMAGE
     Dates: start: 20060101
  3. LANTUS [Concomitant]

REACTIONS (18)
  - ASTHENIA [None]
  - BLOOD GLUCOSE DECREASED [None]
  - BLOOD GLUCOSE INCREASED [None]
  - CEREBROVASCULAR ACCIDENT [None]
  - COORDINATION ABNORMAL [None]
  - COUGH [None]
  - DIFFICULTY IN WALKING [None]
  - FEELING ABNORMAL [None]
  - FEELING JITTERY [None]
  - FLUID OVERLOAD [None]
  - GASTROENTERITIS VIRAL [None]
  - HYPOAESTHESIA [None]
  - IMPAIRED DRIVING ABILITY [None]
  - INFLUENZA [None]
  - LOSS OF CONSCIOUSNESS [None]
  - POST PROCEDURAL COMPLICATION [None]
  - TRIPLE VESSEL BYPASS GRAFT [None]
  - WALKING AID USER [None]
